FAERS Safety Report 23874285 (Version 1)
Quarter: 2024Q2

REPORT INFORMATION
  Report Type: Spontaneous
  Country: US (occurrence: None)
  Receive Date: 20240518
  Receipt Date: 20240518
  Transmission Date: 20240716
  Serious: Yes (Hospitalization)
  Sender: FDA-Public Use
  Company Number: None

PATIENT
  Age: 50 Year
  Sex: Male
  Weight: 93 kg

DRUGS (1)
  1. XELODA [Suspect]
     Active Substance: CAPECITABINE
     Dates: end: 20240430

REACTIONS (5)
  - Anal fissure [None]
  - Haemoglobin decreased [None]
  - Dizziness [None]
  - Rectal haemorrhage [None]
  - Intestinal haemorrhage [None]

NARRATIVE: CASE EVENT DATE: 20240513
